FAERS Safety Report 20439048 (Version 1)
Quarter: 2022Q1

REPORT INFORMATION
  Report Type: Report from Study
  Country: FR (occurrence: FR)
  Receive Date: 20220207
  Receipt Date: 20220207
  Transmission Date: 20220423
  Serious: Yes (Life-Threatening)
  Sender: FDA-Public Use
  Company Number: FR-NOVARTISPH-NVSC2022FR025977

PATIENT
  Age: 43 Year
  Sex: Female
  Weight: 59 kg

DRUGS (3)
  1. CYTARABINE [Suspect]
     Active Substance: CYTARABINE
     Indication: Acute myeloid leukaemia
     Dosage: 322 MG/M2, QD (200 MG/M2 HER PERFUSION IV CONTINUES SUR 24 H, 7 HOURS)
     Route: 041
     Dates: start: 20210806, end: 20210812
  2. MIDOSTAURIN [Suspect]
     Active Substance: MIDOSTAURIN
     Indication: Acute myeloid leukaemia
     Dosage: 25 MG, (100 MG/50 MG MORNING AND 50 MG EVENING )
     Route: 048
     Dates: start: 20210813, end: 20210821
  3. IDARUBICIN [Suspect]
     Active Substance: IDARUBICIN
     Indication: Acute myeloid leukaemia
     Dosage: 14.5 MG, QD (D1, D2, D3, D4 D5 09 MG/M2)
     Route: 041
     Dates: start: 20210806, end: 20210810

REACTIONS (1)
  - Neutropenic colitis [Recovered/Resolved]

NARRATIVE: CASE EVENT DATE: 20210821
